FAERS Safety Report 13256382 (Version 1)
Quarter: 2017Q1

REPORT INFORMATION
  Report Type: Spontaneous
  Country: GB (occurrence: GB)
  Receive Date: 20170221
  Receipt Date: 20170221
  Transmission Date: 20170428
  Serious: Yes (Hospitalization)
  Sender: FDA-Public Use
  Company Number: GB-TEVA-740956ACC

PATIENT
  Age: 82 Year
  Sex: Male
  Weight: 50 kg

DRUGS (6)
  1. FUROSEMIDE. [Suspect]
     Active Substance: FUROSEMIDE
  2. DIGOXIN. [Suspect]
     Active Substance: DIGOXIN
  3. SPIRONOLACTONE. [Suspect]
     Active Substance: SPIRONOLACTONE
  4. ALLOPURINOL. [Suspect]
     Active Substance: ALLOPURINOL
  5. APIXABAN [Suspect]
     Active Substance: APIXABAN
     Indication: ATRIAL FIBRILLATION
     Dosage: 5 MILLIGRAM DAILY;
     Route: 048
  6. PERINDOPRIL [Suspect]
     Active Substance: PERINDOPRIL

REACTIONS (4)
  - Acute kidney injury [Recovered/Resolved]
  - Melaena [Not Recovered/Not Resolved]
  - Abnormal loss of weight [Unknown]
  - Gastrointestinal haemorrhage [Not Recovered/Not Resolved]

NARRATIVE: CASE EVENT DATE: 20170120
